FAERS Safety Report 8717277 (Version 2)
Quarter: 2012Q4

REPORT INFORMATION
  Report Type: Spontaneous
  Country: US (occurrence: None)
  Receive Date: 20120726
  Receipt Date: 20121009
  Transmission Date: 20130627
  Serious: Yes (Hospitalization)
  Sender: FDA-Public Use
  Company Number: UTC-020334

PATIENT
  Age: 62 Year
  Sex: Female
  Weight: 94.09 kg

DRUGS (13)
  1. REMODULIN [Suspect]
     Indication: PULMONARY ARTERIAL HYPERTENSION
     Dosage: (0.076 ug/kg,1 in 1 min)
     Route: 058
     Dates: start: 20110623
  2. REMODULIN [Suspect]
     Indication: PULMONARY HYPERTENSION
     Dosage: (0.076 ug/kg,1 in 1 min)
     Route: 058
     Dates: start: 20110623
  3. REMODULIN [Suspect]
     Indication: PULMONARY ARTERIAL HYPERTENSION
     Dosage: (0.078 ug/kg,1 in 1 min)
     Route: 058
     Dates: start: 20110706
  4. REMODULIN [Suspect]
     Indication: PULMONARY HYPERTENSION
     Dosage: (0.078 ug/kg,1 in 1 min)
     Route: 058
     Dates: start: 20110706
  5. REMODULIN [Suspect]
     Indication: PULMONARY ARTERIAL HYPERTENSION
     Dosage: (0.07 ug/kg,1 in 1 min)
     Route: 058
     Dates: start: 20120710
  6. REMODULIN [Suspect]
     Indication: PULMONARY HYPERTENSION
     Dosage: (0.07 ug/kg,1 in 1 min)
     Route: 058
     Dates: start: 20120710
  7. REMODULIN [Suspect]
     Indication: PULMONARY ARTERIAL HYPERTENSION
     Dosage: (0.06 ug/kg,1 in 1 min)
     Route: 058
     Dates: start: 20120920
  8. REMODULIN [Suspect]
     Indication: PULMONARY HYPERTENSION
     Dosage: (0.06 ug/kg,1 in 1 min)
     Route: 058
     Dates: start: 20120920
  9. REVATIO [Concomitant]
  10. COUMADIN [Concomitant]
  11. METOPROLOL TARTRATE [Concomitant]
  12. CLINDAMYCIN [Concomitant]
  13. VANCOMYCIN [Concomitant]

REACTIONS (11)
  - Infusion site erythema [None]
  - Infusion site swelling [None]
  - Infusion site pain [None]
  - Infusion site infection [None]
  - Infusion site pruritus [None]
  - Infusion site pain [None]
  - Clostridium difficile infection [None]
  - Hepatosplenomegaly [None]
  - Pain in extremity [None]
  - Arthralgia [None]
  - Back pain [None]
